FAERS Safety Report 9403676 (Version 2)
Quarter: 2013Q3

REPORT INFORMATION
  Report Type: Report from Study
  Country: NL (occurrence: NL)
  Receive Date: 20130717
  Receipt Date: 20130822
  Transmission Date: 20140515
  Serious: Yes (Hospitalization)
  Sender: FDA-Public Use
  Company Number: NL-ACTELION-A-CH2013-85829

PATIENT
  Age: 65 Year
  Sex: Male
  Weight: 66 kg

DRUGS (15)
  1. TRACLEER [Suspect]
     Indication: SKIN ULCER
     Dosage: 125 MG, BID
     Route: 048
     Dates: start: 2011, end: 20130315
  2. TRACLEER [Suspect]
     Dosage: 62.5 UNK, UNK
     Route: 048
     Dates: start: 20111011, end: 2011
  3. AZATHIOPRINE [Suspect]
     Indication: SKIN ULCER
     Dosage: 150 MG, QD
     Dates: end: 20130315
  4. AZATHIOPRINE [Suspect]
     Dosage: UNK
     Dates: start: 20130621
  5. OMEPRAZOLE [Concomitant]
     Dosage: 40 MG, QD
  6. DOMPERIDON [Concomitant]
     Dosage: 10 MG, BID
  7. MOVICOLON [Concomitant]
     Dosage: 1 , BID
  8. EPOETIN [Concomitant]
  9. FUROSEMIDE [Concomitant]
     Dosage: 40 MG, QD
  10. ENALAPRIL [Concomitant]
     Dosage: 20 MG, BID
  11. TILDIEM [Concomitant]
     Dosage: 200 MG, QD
  12. COLECALCIFEROL [Concomitant]
     Dosage: 20 ML, UNK
  13. FERRO [Concomitant]
     Dosage: UNK, QD
     Route: 042
  14. SUCRALFAAT [Concomitant]
  15. ALENDRONIC ACID [Concomitant]

REACTIONS (6)
  - Anaemia [Not Recovered/Not Resolved]
  - Transfusion [Unknown]
  - Systemic sclerosis [Unknown]
  - Disease progression [Unknown]
  - Dyspnoea [Not Recovered/Not Resolved]
  - Vomiting [Not Recovered/Not Resolved]
